FAERS Safety Report 8317410-2 (Version None)
Quarter: 2012Q2

REPORT INFORMATION
  Report Type: 
  Country: None (occurrence: None)
  Receive Date: 20120427
  Receipt Date: 20120412
  Transmission Date: 20120825
  Serious: Yes (Other)
  Sender: FDA-Public Use
  Company Number: US-MYLANLABS-2012S1008561

PATIENT
  Sex: Male

DRUGS (13)
  1. DIGOXIN [Suspect]
     Dates: start: 20060410, end: 20090802
  2. COUMADIN [Concomitant]
  3. CRESTOR [Concomitant]
  4. METOPROLOL TARTRATE [Concomitant]
  5. CHANTIX [Concomitant]
  6. BETA BLOCKING AGENTS [Concomitant]
  7. ZETIA [Concomitant]
  8. ALTACE [Concomitant]
  9. ACE INHIBITORS [Concomitant]
  10. WARFARIN SODIUM [Concomitant]
  11. VIAGRA [Concomitant]
  12. FLOMAX [Concomitant]
  13. ASPIRIN [Concomitant]

REACTIONS (12)
  - ACUTE MYOCARDIAL INFARCTION [None]
  - PROSTATIC SPECIFIC ANTIGEN INCREASED [None]
  - ISCHAEMIA [None]
  - CARDIAC STRESS TEST ABNORMAL [None]
  - AORTIC DILATATION [None]
  - CORONARY ARTERY DISEASE [None]
  - LEFT VENTRICULAR HYPERTROPHY [None]
  - LEFT VENTRICULAR DYSFUNCTION [None]
  - EJECTION FRACTION DECREASED [None]
  - MITRAL VALVE INCOMPETENCE [None]
  - ECHOCARDIOGRAM ABNORMAL [None]
  - TRICUSPID VALVE INCOMPETENCE [None]
